FAERS Safety Report 8098874-9 (Version None)
Quarter: 2012Q1

REPORT INFORMATION
  Report Type: 
  Country: None (occurrence: None)
  Receive Date: 20120129
  Receipt Date: 20110930
  Transmission Date: 20120608
  Serious: No
  Sender: FDA-Public Use
  Company Number: US-ABBOTT-11P-163-0860365-00

PATIENT
  Age: 32 Year
  Sex: Female

DRUGS (4)
  1. TOPAMAX [Concomitant]
     Indication: MIGRAINE
  2. HUMIRA [Suspect]
     Indication: RHEUMATOID ARTHRITIS
     Dates: start: 20101101
  3. HUMIRA [Suspect]
  4. HUMIRA [Suspect]
     Dates: start: 20101201

REACTIONS (3)
  - DRUG INEFFECTIVE [None]
  - INJECTION SITE PAIN [None]
  - INJECTION SITE NODULE [None]
